FAERS Safety Report 22168230 (Version 2)
Quarter: 2023Q2

REPORT INFORMATION
  Report Type: Spontaneous
  Country: US (occurrence: US)
  Receive Date: 20230403
  Receipt Date: 20230502
  Transmission Date: 20230722
  Serious: No
  Sender: FDA-Public Use
  Company Number: US-PFIZER INC-PV202300058400

PATIENT

DRUGS (3)
  1. FESOTERODINE [Suspect]
     Active Substance: FESOTERODINE
     Indication: Nocturia
     Dosage: UNK
  2. DESMOPRESSIN ACETATE [Suspect]
     Active Substance: DESMOPRESSIN ACETATE
     Indication: Nocturia
     Dosage: UNK
  3. SOLIFENACIN [Suspect]
     Active Substance: SOLIFENACIN
     Indication: Nocturia
     Dosage: UNK

REACTIONS (1)
  - Drug ineffective [Unknown]
